FAERS Safety Report 18042923 (Version 1)
Quarter: 2020Q3

REPORT INFORMATION
  Report Type: Spontaneous
  Country: US (occurrence: US)
  Receive Date: 20200720
  Receipt Date: 20200720
  Transmission Date: 20201103
  Serious: Yes (Other)
  Sender: FDA-Public Use
  Company Number: US-ACCORD-188193

PATIENT
  Age: 47 Year
  Sex: Male

DRUGS (4)
  1. VALPROIC ACID. [Concomitant]
     Active Substance: VALPROIC ACID
     Dosage: EVERY BEDTIME
  2. QUETIAPINE. [Suspect]
     Active Substance: QUETIAPINE
     Indication: BIPOLAR DISORDER
     Dosage: EVERY BEDTIME
  3. DULOXETINE. [Concomitant]
     Active Substance: DULOXETINE
  4. DEXAMFETAMINE [Concomitant]
     Active Substance: DEXTROAMPHETAMINE

REACTIONS (5)
  - Sleep-related eating disorder [Recovered/Resolved]
  - Weight increased [Unknown]
  - Restless legs syndrome [Recovered/Resolved]
  - Choking [Unknown]
  - Somnambulism [Recovered/Resolved]
